FAERS Safety Report 25350733 (Version 1)
Quarter: 2025Q2

REPORT INFORMATION
  Report Type: Other
  Country: IN (occurrence: IN)
  Receive Date: 20250523
  Receipt Date: 20250523
  Transmission Date: 20250717
  Serious: Yes (Death, Hospitalization, Other)
  Sender: AET PHARMA
  Company Number: IN-AET-000018

PATIENT
  Age: 51 Year
  Sex: Male

DRUGS (3)
  1. LEFLUNOMIDE [Suspect]
     Active Substance: LEFLUNOMIDE
     Indication: Rheumatoid arthritis
     Dosage: 10 MILLIGRAMS
  2. HYDROXYCHLOROQUINE [Suspect]
     Active Substance: HYDROXYCHLOROQUINE
     Indication: Rheumatoid arthritis
     Dosage: 200 MILLIGRAMS
  3. SULFASALAZINE [Suspect]
     Active Substance: SULFASALAZINE
     Indication: Rheumatoid arthritis
     Dosage: 500 MILLIGRAMS

REACTIONS (1)
  - Drug reaction with eosinophilia and systemic symptoms [Fatal]
